FAERS Safety Report 19459030 (Version 4)
Quarter: 2021Q3

REPORT INFORMATION
  Report Type: Report from Study
  Country: US (occurrence: US)
  Receive Date: 20210624
  Receipt Date: 20210716
  Transmission Date: 20211014
  Serious: Yes (Hospitalization, Other)
  Sender: FDA-Public Use
  Company Number: US-SA-2021SA206505

PATIENT
  Age: 63 Year
  Sex: Male

DRUGS (8)
  1. DUPILUMAB [Suspect]
     Active Substance: DUPILUMAB
     Dosage: 300 MG, QOW
     Route: 058
     Dates: start: 20171104, end: 2021
  2. ATORVASTATIN CALCIUM. [Concomitant]
     Active Substance: ATORVASTATIN CALCIUM
     Dosage: UNK
  3. DUPILUMAB [Suspect]
     Active Substance: DUPILUMAB
     Indication: DERMATITIS ATOPIC
     Dosage: 600 MG, 1X
     Route: 058
     Dates: start: 20171021, end: 20171021
  4. ELIQUIS [Concomitant]
     Active Substance: APIXABAN
     Dosage: UNK
  5. DUPILUMAB [Suspect]
     Active Substance: DUPILUMAB
     Dosage: 300 MG, QOW
     Route: 058
     Dates: start: 20210620
  6. DILTIAZEM. [Concomitant]
     Active Substance: DILTIAZEM
     Dosage: UNK
  7. ANORO ELLIPTA [Concomitant]
     Active Substance: UMECLIDINIUM BROMIDE\VILANTEROL TRIFENATATE
     Dosage: UNK
  8. PROVENTIL HFA [SALBUTAMOL] [Concomitant]
     Dosage: UNK

REACTIONS (12)
  - Cardiac flutter [Unknown]
  - Atrial fibrillation [Unknown]
  - Thrombosis [Unknown]
  - Product dose omission issue [Unknown]
  - Atrioventricular block [Unknown]
  - Meniscus injury [Unknown]
  - Aortic stenosis [Unknown]
  - Pain in extremity [Not Recovered/Not Resolved]
  - Fungal infection [Recovered/Resolved]
  - Bursitis [Unknown]
  - Pain [Unknown]
  - Venous occlusion [Not Recovered/Not Resolved]

NARRATIVE: CASE EVENT DATE: 20191216
